FAERS Safety Report 5457134-2 (Version None)
Quarter: 2007Q3

REPORT INFORMATION
  Report Type: 
  Country: None (occurrence: None)
  Receive Date: 20070918
  Receipt Date: 20070228
  Transmission Date: 20080115
  Serious: No
  Sender: FDA-Public Use
  Company Number: US-ASTRAZENECA-2007UW00736

PATIENT
  Age: 684 Month
  Sex: Male
  Weight: 102.7 kg

DRUGS (3)
  1. SEROQUEL [Suspect]
     Route: 048
     Dates: start: 20050601, end: 20060501
  2. TRAZODONE HCL [Concomitant]
  3. WELLBUTRIN [Concomitant]

REACTIONS (3)
  - DIABETES MELLITUS [None]
  - DISORIENTATION [None]
  - IRRITABILITY [None]
